FAERS Safety Report 9363497 (Version 3)
Quarter: 2013Q4

REPORT INFORMATION
  Report Type: Spontaneous
  Country: ES (occurrence: ES)
  Receive Date: 20130624
  Receipt Date: 20131003
  Transmission Date: 20140711
  Serious: Yes (Death)
  Sender: FDA-Public Use
  Company Number: ES-ELI_LILLY_AND_COMPANY-ES201306004854

PATIENT
  Age: 63 Year
  Sex: Male
  Weight: 78 kg

DRUGS (4)
  1. ZYPADHERA [Suspect]
     Indication: PSYCHOTIC DISORDER
     Dosage: 300 MG, 2/M
     Dates: start: 20111122
  2. ZYPADHERA [Suspect]
     Dosage: 300 MG, EVERY 3 WEEKS
     Dates: start: 201303, end: 20130605
  3. OLANZAPINE [Suspect]
     Dosage: 10 MG, QD
     Dates: end: 201303
  4. DORMODOR [Concomitant]
     Dosage: UNK
     Dates: start: 201303

REACTIONS (4)
  - Cardiopulmonary failure [Fatal]
  - Bronchopneumonia [Fatal]
  - Arteriosclerosis coronary artery [Fatal]
  - Prescribed overdose [Recovered/Resolved]
